FAERS Safety Report 4688887-9 (Version None)
Quarter: 2005Q2

REPORT INFORMATION
  Report Type: 
  Country: None (occurrence: None)
  Receive Date: 20050606
  Receipt Date: 20050519
  Transmission Date: 20051028
  Serious: Yes (Disabling)
  Sender: FDA-Public Use
  Company Number: 200509281

PATIENT
  Age: 2 Year
  Sex: Female
  Weight: 14.5 kg

DRUGS (5)
  1. HAEMATE HS (FACTOR VIII (ANTIHAEMOPHILIC FACTOR)) (ZLB BEHRING) [Suspect]
     Indication: VON WILLEBRAND'S DISEASE
     Dosage: SEE IMAGE, IV
     Route: 042
     Dates: start: 20040723, end: 20040725
  2. HAEMATE HS (FACTOR VIII (ANTIHAEMOPHILIC FACTOR)) (ZLB BEHRING) [Suspect]
     Indication: VON WILLEBRAND'S DISEASE
     Dosage: SEE IMAGE, IV
     Route: 042
     Dates: start: 20040726, end: 20040801
  3. HAEMATE HS (FACTOR VIII (ANTIHAEMOPHILIC FACTOR) (ZLB BEHRING) [Suspect]
  4. CYCLOKAPRON [Concomitant]
  5. OTRIVEN [Concomitant]

REACTIONS (1)
  - ANTI-HBC ANTIBODY POSITIVE [None]
